FAERS Safety Report 4443715-1 (Version None)
Quarter: 2004Q3

REPORT INFORMATION
  Report Type: 
  Country: None (occurrence: None)
  Receive Date: 20040729
  Receipt Date: 20030620
  Transmission Date: 20050211
  Serious: Yes (Other)
  Sender: FDA-Public Use
  Company Number: USA-2003-0005837

PATIENT
  Age: 42 Year
  Sex: Male

DRUGS (3)
  1. MS CONTIN [Suspect]
     Dosage: 0 MG, SEE TEXT, ORAL
     Route: 048
     Dates: start: 20010601, end: 20010802
  2. XANAX [Suspect]
     Dosage: SEE TEXT, ORAL
     Route: 048
  3. PSORCON [Concomitant]

REACTIONS (10)
  - AMNESIA [None]
  - DRUG ABUSER [None]
  - DYSARTHRIA [None]
  - HEADACHE [None]
  - HYPERHIDROSIS [None]
  - HYPOAESTHESIA [None]
  - INSOMNIA [None]
  - LETHARGY [None]
  - PRURITUS [None]
  - TREMOR [None]
